FAERS Safety Report 10191843 (Version 1)
Quarter: 2014Q2

REPORT INFORMATION
  Report Type: Spontaneous
  Country: US (occurrence: None)
  Receive Date: 20140522
  Receipt Date: 20140522
  Transmission Date: 20141212
  Serious: Yes (Other)
  Sender: FDA-Public Use
  Company Number: None

PATIENT
  Age: 7 Month
  Sex: Female
  Weight: 57.61 kg

DRUGS (3)
  1. LEVETRIACETAM [Suspect]
     Indication: PARTIAL SEIZURES
     Dosage: 1.5 TABLETS TID ORAL
     Route: 048
  2. LAMOTRIGINE [Concomitant]
  3. MULTIVITAMINS [Concomitant]

REACTIONS (3)
  - Feeling abnormal [None]
  - Convulsion [None]
  - Product substitution issue [None]
